FAERS Safety Report 16358655 (Version 2)
Quarter: 2019Q3

REPORT INFORMATION
  Report Type: Report from Study
  Country: US (occurrence: US)
  Receive Date: 20190527
  Receipt Date: 20190911
  Transmission Date: 20191004
  Serious: Yes (Other)
  Sender: FDA-Public Use
  Company Number: US-SA-2019SA144688

PATIENT
  Age: 29 Year
  Sex: Female

DRUGS (5)
  1. SARILUMAB [Suspect]
     Active Substance: SARILUMAB
     Indication: ANKYLOSING SPONDYLITIS
  2. SARILUMAB [Suspect]
     Active Substance: SARILUMAB
     Indication: SPINAL CORD DISORDER
  3. SARILUMAB [Suspect]
     Active Substance: SARILUMAB
     Indication: RHEUMATOID ARTHRITIS
     Dosage: 200 MG, QOW
     Route: 058
     Dates: start: 20190531, end: 20190726
  4. SARILUMAB [Suspect]
     Active Substance: SARILUMAB
     Indication: ARTHROPATHY
  5. METHOTREXATE. [Concomitant]
     Active Substance: METHOTREXATE

REACTIONS (3)
  - Therapeutic response decreased [Not Recovered/Not Resolved]
  - Rheumatoid arthritis [Unknown]
  - Unintentional use for unapproved indication [Unknown]

NARRATIVE: CASE EVENT DATE: 2019
